FAERS Safety Report 21246347 (Version 2)
Quarter: 2022Q3

REPORT INFORMATION
  Report Type: Spontaneous
  Country: TR (occurrence: TR)
  Receive Date: 20220824
  Receipt Date: 20220906
  Transmission Date: 20221026
  Serious: Yes (Hospitalization, Congenital Anomaly, Other)
  Sender: FDA-Public Use
  Company Number: TR-BION-010913

PATIENT
  Age: 14 Month
  Sex: Male

DRUGS (1)
  1. VALPROIC ACID [Suspect]
     Active Substance: VALPROIC ACID
     Route: 064

REACTIONS (3)
  - Foetal exposure during pregnancy [Unknown]
  - Foetal anticonvulsant syndrome [Unknown]
  - Dermoid cyst [Recovered/Resolved]
